FAERS Safety Report 17314084 (Version 3)
Quarter: 2020Q1

REPORT INFORMATION
  Report Type: Report from Study
  Country: US (occurrence: US)
  Receive Date: 20200124
  Receipt Date: 20200206
  Transmission Date: 20200409
  Serious: Yes (Other)
  Sender: FDA-Public Use
  Company Number: US-ROCHE-2527288

PATIENT
  Sex: Female
  Weight: 59.02 kg

DRUGS (4)
  1. AVASTIN [Suspect]
     Active Substance: BEVACIZUMAB
     Indication: MACULAR DEGENERATION
     Dosage: RIGHT EYE, ONGOING: YES
     Route: 050
     Dates: start: 2014
  2. AVASTIN [Suspect]
     Active Substance: BEVACIZUMAB
     Indication: CHOROIDAL NEOVASCULARISATION
  3. AVASTIN [Suspect]
     Active Substance: BEVACIZUMAB
     Indication: NEOVASCULAR AGE-RELATED MACULAR DEGENERATION
     Dosage: LEFT EYE, ONGOING: NO
     Route: 050
     Dates: start: 2014, end: 2019
  4. LUCENTIS [Suspect]
     Active Substance: RANIBIZUMAB
     Indication: GLAUCOMA
     Dosage: LEFT EYE, ONGOING: YES
     Route: 050
     Dates: start: 2019

REACTIONS (4)
  - Blindness transient [Recovered/Resolved]
  - Lacrimation increased [Recovered/Resolved]
  - Eye swelling [Recovered/Resolved]
  - Eye irritation [Recovered/Resolved]
